FAERS Safety Report 10488468 (Version 1)
Quarter: 2014Q4

REPORT INFORMATION
  Report Type: Spontaneous
  Country: US (occurrence: None)
  Receive Date: 20141001
  Receipt Date: 20141001
  Transmission Date: 20150528
  Serious: Yes (Other)
  Sender: FDA-Public Use
  Company Number: None

PATIENT
  Age: 78 Year
  Sex: Female
  Weight: 78.93 kg

DRUGS (6)
  1. ZYVOX [Suspect]
     Active Substance: LINEZOLID
     Indication: PNEUMONIA
     Dosage: 1 PILL
     Route: 048
     Dates: start: 20140720, end: 20140728
  2. COUMADIN [Concomitant]
     Active Substance: WARFARIN SODIUM
  3. CRESTOR [Concomitant]
     Active Substance: ROSUVASTATIN CALCIUM
  4. CARDIZEM 120 MG [Concomitant]
  5. DIGOXIN. [Concomitant]
     Active Substance: DIGOXIN
  6. BENADRYL [Concomitant]
     Active Substance: DIPHENHYDRAMINE HYDROCHLORIDE

REACTIONS (13)
  - Vision blurred [None]
  - Stomatitis [None]
  - Glossitis [None]
  - Alopecia [None]
  - Lip swelling [None]
  - Cataract [None]
  - Tongue blistering [None]
  - Impaired driving ability [None]
  - Peripheral swelling [None]
  - Cardiac murmur [None]
  - Vomiting [None]
  - Fluid retention [None]
  - Unevaluable event [None]

NARRATIVE: CASE EVENT DATE: 20140729
